FAERS Safety Report 7433313-X (Version None)
Quarter: 2011Q2

REPORT INFORMATION
  Report Type: 
  Country: None (occurrence: None)
  Receive Date: 20110422
  Receipt Date: 20110414
  Transmission Date: 20111010
  Serious: Yes (Other)
  Sender: FDA-Public Use
  Company Number: US-CEPHALON-2011001875

PATIENT
  Sex: Male
  Weight: 73 kg

DRUGS (1)
  1. AMRIX [Suspect]
     Route: 048
     Dates: start: 20110413

REACTIONS (5)
  - CHEST DISCOMFORT [None]
  - NAUSEA [None]
  - DYSPNOEA [None]
  - TINNITUS [None]
  - HEADACHE [None]
